APPROVED DRUG PRODUCT: CROMOLYN SODIUM
Active Ingredient: CROMOLYN SODIUM
Strength: 5.2MG/SPRAY
Dosage Form/Route: SPRAY, METERED;NASAL
Application: A075702 | Product #001
Applicant: BAUSCH AND LOMB PHARMACEUTICALS INC
Approved: Jul 3, 2001 | RLD: No | RS: Yes | Type: OTC